FAERS Safety Report 7375980-5 (Version None)
Quarter: 2011Q1

REPORT INFORMATION
  Report Type: 
  Country: None (occurrence: None)
  Receive Date: 20110325
  Receipt Date: 20110314
  Transmission Date: 20110831
  Serious: Yes (Hospitalization)
  Sender: FDA-Public Use
  Company Number: PHHO2011GB00973

PATIENT
  Sex: Female

DRUGS (7)
  1. EVEROLIMUS [Suspect]
     Indication: ACUTE MYELOID LEUKAEMIA
     Dosage: UNK
     Route: 048
     Dates: start: 20101223, end: 20101228
  2. AMOXICILLIN [Concomitant]
  3. CYCLIZINE [Concomitant]
  4. DIHYDROCODEINE BITARTRATE INJ [Concomitant]
  5. METOCLOPRAMIDE [Concomitant]
  6. CYTARABINE [Suspect]
     Indication: ACUTE MYELOID LEUKAEMIA
     Dosage: 5400 MG, UNK
     Dates: start: 20101216, end: 20101221
  7. PREDNISOLONE [Concomitant]
     Dosage: UNK

REACTIONS (7)
  - NEUTROPENIC COLITIS [None]
  - ABDOMINAL PAIN [None]
  - PERICARDIAL EFFUSION [None]
  - RESPIRATORY DISTRESS [None]
  - VOMITING [None]
  - PYREXIA [None]
  - TACHYCARDIA [None]
